FAERS Safety Report 24108788 (Version 1)
Quarter: 2024Q3

REPORT INFORMATION
  Report Type: Spontaneous
  Country: IT (occurrence: IT)
  Receive Date: 20240718
  Receipt Date: 20240718
  Transmission Date: 20241016
  Serious: Yes (Hospitalization, Other)
  Sender: RANBAXY
  Company Number: IT-SUN PHARMACEUTICAL INDUSTRIES LTD-2024R1-457060

PATIENT
  Age: 39 Year
  Sex: Male

DRUGS (2)
  1. METHADONE [Suspect]
     Active Substance: METHADONE HYDROCHLORIDE
     Indication: Drug abuse
     Dosage: 50 MILLIGRAM/DIE
     Route: 065
  2. METHADONE [Suspect]
     Active Substance: METHADONE HYDROCHLORIDE
     Indication: Drug dependence
     Dosage: 130 MILLIGRAM/DIE
     Route: 065

REACTIONS (4)
  - Long QT syndrome [Unknown]
  - Ventricular arrhythmia [Unknown]
  - Hypokalaemia [Unknown]
  - Cardiomyopathy [Unknown]
